FAERS Safety Report 22206607 (Version 1)
Quarter: 2023Q2

REPORT INFORMATION
  Report Type: Spontaneous
  Country: US (occurrence: None)
  Receive Date: 20230412
  Receipt Date: 20230412
  Transmission Date: 20230722
  Serious: Yes (Disabling, Other)
  Sender: FDA-Public Use
  Company Number: None

PATIENT
  Age: 72 Year
  Sex: Female
  Weight: 100.35 kg

DRUGS (6)
  1. METOPROLOL [Suspect]
     Active Substance: METOPROLOL
     Indication: Hypertension
  2. Omeprozole 40mg [Concomitant]
  3. D2 [Concomitant]
  4. POTASSIUM [Concomitant]
     Active Substance: POTASSIUM
  5. IRON [Concomitant]
     Active Substance: IRON
  6. VITAMIN B12 [Concomitant]
     Active Substance: CYANOCOBALAMIN

REACTIONS (10)
  - Therapy change [None]
  - Blood pressure increased [None]
  - Chest discomfort [None]
  - Dyspnoea [None]
  - Tremor [None]
  - Nausea [None]
  - Palpitations [None]
  - Nervous system disorder [None]
  - Toxicity to various agents [None]
  - Therapy cessation [None]

NARRATIVE: CASE EVENT DATE: 20230206
